FAERS Safety Report 4613895-3 (Version None)
Quarter: 2005Q1

REPORT INFORMATION
  Report Type: 
  Country: None (occurrence: None)
  Receive Date: 20050321
  Receipt Date: 20050315
  Transmission Date: 20050727
  Serious: Yes (Other)
  Sender: FDA-Public Use
  Company Number: PHEH2005US03234

PATIENT

DRUGS (1)
  1. TRILEPTAL [Suspect]
     Dosage: UNK,UNK

REACTIONS (1)
  - HEPATITIS C [None]
